FAERS Safety Report 11335205 (Version 2)
Quarter: 2015Q3

REPORT INFORMATION
  Report Type: Report from Study
  Country: JP (occurrence: JP)
  Receive Date: 20150804
  Receipt Date: 20150916
  Transmission Date: 20151125
  Serious: Yes (Other)
  Sender: FDA-Public Use
  Company Number: JP-EISAI MEDICAL RESEARCH-EC-2015-009285

PATIENT
  Age: 77 Year
  Sex: Male

DRUGS (12)
  1. MOHRUS TAPE L [Concomitant]
  2. BIOFERMIN [Concomitant]
     Active Substance: BACILLUS SUBTILIS\LACTOBACILLUS ACIDOPHILUS\STREPTOCOCCUS FAECAIS
  3. CONIEL [Concomitant]
     Active Substance: BENIDIPINE HYDROCHLORIDE
  4. SECTOR:LOTION [Concomitant]
  5. ARICEPT [Suspect]
     Active Substance: DONEPEZIL HYDROCHLORIDE
     Indication: DEMENTIA ALZHEIMER^S TYPE
     Route: 048
     Dates: start: 20140407, end: 20140414
  6. TSUMURA YOKUKANSAN [Concomitant]
  7. ARICEPT [Suspect]
     Active Substance: DONEPEZIL HYDROCHLORIDE
     Route: 048
     Dates: start: 20140421, end: 20150114
  8. URIEF [Concomitant]
     Active Substance: SILODOSIN
  9. TANATRIL [Concomitant]
     Active Substance: IMIDAPRIL
  10. TSUMURA HACHIMIJIOGAN EXTRACT [Concomitant]
  11. FERROUS SULFATE [Concomitant]
     Active Substance: FERROUS SULFATE\FERROUS SULFATE, DRIED
  12. NEXIUM [Concomitant]
     Active Substance: ESOMEPRAZOLE MAGNESIUM

REACTIONS (1)
  - Agitation [Recovered/Resolved]

NARRATIVE: CASE EVENT DATE: 20150110
